FAERS Safety Report 10047496 (Version 2)
Quarter: 2014Q2

REPORT INFORMATION
  Report Type: Spontaneous
  Country: JP (occurrence: JP)
  Receive Date: 20140331
  Receipt Date: 20140418
  Transmission Date: 20141212
  Serious: Yes (Life-Threatening)
  Sender: FDA-Public Use
  Company Number: JP-JNJFOC-20140314799

PATIENT
  Age: 83 Year
  Sex: Male
  Weight: 52 kg

DRUGS (8)
  1. XARELTO [Suspect]
     Indication: CEREBROVASCULAR ACCIDENT PROPHYLAXIS
     Route: 048
     Dates: start: 201305, end: 20140317
  2. XARELTO [Suspect]
     Indication: ATRIAL FIBRILLATION
     Route: 048
     Dates: start: 201305, end: 20140317
  3. HALCION [Concomitant]
     Indication: INSOMNIA
     Route: 048
  4. YODEL [Concomitant]
     Indication: CONSTIPATION
     Dosage: AT BED TIME
     Route: 048
  5. OMEPRAL [Concomitant]
     Route: 048
  6. MERISLON [Concomitant]
     Route: 048
  7. MUCODYNE [Concomitant]
     Indication: SPUTUM RETENTION
     Route: 048
     Dates: start: 20140317, end: 20140323
  8. MAGMITT [Concomitant]
     Route: 048

REACTIONS (1)
  - Interstitial lung disease [Unknown]
